FAERS Safety Report 24264536 (Version 1)
Quarter: 2024Q3

REPORT INFORMATION
  Report Type: Spontaneous
  Country: US (occurrence: None)
  Receive Date: 20240828
  Receipt Date: 20240828
  Transmission Date: 20241016
  Serious: Yes (Life-Threatening)
  Sender: Public
  Company Number: None

PATIENT
  Age: 55 Year
  Sex: Female
  Weight: 71.3 kg

DRUGS (11)
  1. OMNIPAQUE [Suspect]
     Active Substance: IOHEXOL
     Indication: Computerised tomogram thorax
     Dosage: FREQUENCY : AS NEEDED;?
     Route: 040
  2. OMNIPAQUE [Suspect]
     Active Substance: IOHEXOL
     Indication: Scan with contrast
  3. HYDROMORPHONE [Concomitant]
     Active Substance: HYDROMORPHONE
  4. Sodium chloride 0.9% bolus [Concomitant]
  5. AMLODIPINE [Concomitant]
     Active Substance: AMLODIPINE BESYLATE
  6. ASPIRIN [Concomitant]
     Active Substance: ASPIRIN
  7. ERGOCALCIFEROL [Concomitant]
     Active Substance: ERGOCALCIFEROL
  8. FOLIC ACID [Concomitant]
     Active Substance: FOLIC ACID
  9. HYDROCODONE BITARTRATE AND ACETAMINOPHEN [Concomitant]
     Active Substance: ACETAMINOPHEN\HYDROCODONE BITARTRATE
  10. PREDNISONE [Concomitant]
     Active Substance: PREDNISONE
  11. OXYCODONE [Concomitant]
     Active Substance: OXYCODONE

REACTIONS (15)
  - Retching [None]
  - Near death experience [None]
  - Respiratory distress [None]
  - Cyanosis [None]
  - Unresponsive to stimuli [None]
  - Pulse absent [None]
  - Pulmonary congestion [None]
  - Cardiac arrest [None]
  - Vasoplegia syndrome [None]
  - Pulseless electrical activity [None]
  - Anaphylactic reaction [None]
  - Hypoxia [None]
  - Cardiac failure congestive [None]
  - Pulmonary oedema [None]
  - Cardiac amyloidosis [None]

NARRATIVE: CASE EVENT DATE: 20240818
